FAERS Safety Report 8848620 (Version 3)
Quarter: 2014Q2

REPORT INFORMATION
  Report Type: Spontaneous
  Country: US (occurrence: US)
  Receive Date: 20121018
  Receipt Date: 20130810
  Transmission Date: 20141212
  Serious: Yes (Hospitalization, Other)
  Sender: FDA-Public Use
  Company Number: US-BAXTER-2012BAX019877

PATIENT
  Age: 62 Year
  Sex: Male

DRUGS (3)
  1. DIANEAL LOW CALCIUM [Suspect]
     Indication: PERITONEAL DIALYSIS
     Dosage: MIDDAY EXCHANGE 2000ML AND NIGHTLY 2L X 3 CYCLES WITH A LAST FILL OF 2000ML
     Route: 033
     Dates: start: 20110224
  2. DIANEAL PD2 [Suspect]
     Indication: PERITONEAL DIALYSIS
     Route: 033
  3. DIANEAL PD2 [Suspect]
     Indication: PERITONEAL DIALYSIS
     Route: 033

REACTIONS (4)
  - Cardiac disorder [Recovering/Resolving]
  - Loss of consciousness [Recovering/Resolving]
  - Dehydration [Recovered/Resolved]
  - Hypotension [Recovered/Resolved]
